FAERS Safety Report 5622341-2 (Version None)
Quarter: 2008Q1

REPORT INFORMATION
  Report Type: 
  Country: None (occurrence: None)
  Receive Date: 20080211
  Receipt Date: 20080109
  Transmission Date: 20080703
  Serious: No
  Sender: FDA-Public Use
  Company Number: FR-PFIZER INC-2007076311

PATIENT
  Age: 56 Year
  Sex: Female

DRUGS (1)
  1. CHANTIX [Suspect]
     Route: 048
     Dates: start: 20070323, end: 20070520

REACTIONS (2)
  - ACNE [None]
  - HAEMATOCHEZIA [None]
